FAERS Safety Report 4976672-X (Version None)
Quarter: 2006Q2

REPORT INFORMATION
  Report Type: 
  Country: None (occurrence: None)
  Receive Date: 20060412
  Receipt Date: 20060403
  Transmission Date: 20061013
  Serious: Yes (Hospitalization)
  Sender: FDA-Public Use
  Company Number: S06-USA-00637-01

PATIENT
  Age: 71 Year
  Sex: Female

DRUGS (4)
  1. LEXAPRO [Suspect]
     Indication: MENTAL DISORDER
     Dosage: 10 MG QD PO
     Route: 048
     Dates: start: 20060125, end: 20060101
  2. LEXAPRO [Suspect]
     Indication: MENTAL DISORDER
     Dosage: 20 MG QD PO
     Route: 048
     Dates: start: 20060101, end: 20060212
  3. MOBAN [Concomitant]
  4. MULTIPLE MEDICATIONS (NOS) [Concomitant]

REACTIONS (11)
  - ABNORMAL BEHAVIOUR [None]
  - AGGRESSION [None]
  - CONVULSION [None]
  - MANIA [None]
  - MUSCLE TWITCHING [None]
  - OBSESSIVE THOUGHTS [None]
  - PNEUMONIA [None]
  - SPEECH DISORDER [None]
  - TIC [None]
  - UROSEPSIS [None]
  - VERBIGERATION [None]
